FAERS Safety Report 8604716-2 (Version None)
Quarter: 2012Q3

REPORT INFORMATION
  Report Type: 
  Country: None (occurrence: None)
  Receive Date: 20120820
  Receipt Date: 20120816
  Transmission Date: 20120928
  Serious: Yes (Death)
  Sender: FDA-Public Use
  Company Number: PHHY2012CA070383

PATIENT
  Sex: Male

DRUGS (4)
  1. CLOZARIL [Suspect]
     Indication: SCHIZOAFFECTIVE DISORDER
     Dosage: 300 MG, UNK
     Route: 048
     Dates: start: 20120312
  2. RESTORIL [Concomitant]
     Dosage: 15 MG, QHS
  3. OLANZAPINE [Concomitant]
  4. HALDOL [Concomitant]
     Dosage: 3 MG, TID
     Route: 048

REACTIONS (1)
  - DEATH [None]
